FAERS Safety Report 7369036-5 (Version None)
Quarter: 2011Q1

REPORT INFORMATION
  Report Type: 
  Country: None (occurrence: None)
  Receive Date: 20110323
  Receipt Date: 20110316
  Transmission Date: 20110831
  Serious: Yes (Other)
  Sender: FDA-Public Use
  Company Number: US-PFIZER INC-2009306751

PATIENT
  Sex: Female
  Weight: 54.422 kg

DRUGS (7)
  1. HYDROCODONE BITARTRATE [Concomitant]
     Indication: ARTHRITIS
     Dosage: UNK
  2. PROMETHAZINE [Concomitant]
     Indication: NAUSEA
     Dosage: UNK
  3. HYDROXYCHLOROQUINE SULFATE [Concomitant]
     Indication: SYSTEMIC LUPUS ERYTHEMATOSUS
     Dosage: UNK
  4. METHADONE HYDROCHLORIDE [Suspect]
     Indication: DRUG ABUSE
     Dosage: UNK
     Dates: start: 20090101, end: 20090101
  5. TRAZODONE [Concomitant]
     Indication: INSOMNIA
     Dosage: UNK
  6. LYRICA [Suspect]
     Indication: FIBROMYALGIA
     Dosage: 150 MG, 3X/DAY
     Route: 048
     Dates: start: 20081101
  7. XANAX [Concomitant]
     Indication: CONVULSION
     Dosage: UNK

REACTIONS (12)
  - FALL [None]
  - ARTHRITIS [None]
  - EAR INFECTION [None]
  - DIPLOPIA [None]
  - GRAND MAL CONVULSION [None]
  - VISION BLURRED [None]
  - WEIGHT DECREASED [None]
  - LOSS OF CONSCIOUSNESS [None]
  - WEIGHT INCREASED [None]
  - TONGUE BITING [None]
  - HEAD INJURY [None]
  - SYSTEMIC LUPUS ERYTHEMATOSUS [None]
